FAERS Safety Report 15694567 (Version 1)
Quarter: 2018Q4

REPORT INFORMATION
  Report Type: Spontaneous
  Country: US (occurrence: US)
  Receive Date: 20181206
  Receipt Date: 20181206
  Transmission Date: 20190205
  Serious: No
  Sender: FDA-Public Use
  Company Number: US-ENDO PHARMACEUTICALS INC-2018-039883

PATIENT
  Sex: Male

DRUGS (2)
  1. XIAFLEX [Suspect]
     Active Substance: COLLAGENASE CLOSTRIDIUM HISTOLYTICUM
     Dosage: UNK MG, UNKNOWN CYCLE; 1 INJECTION
     Route: 026
     Dates: start: 201806
  2. XIAFLEX [Suspect]
     Active Substance: COLLAGENASE CLOSTRIDIUM HISTOLYTICUM
     Indication: PEYRONIE^S DISEASE
     Dosage: UNK MG, UNKNOWN CYCLE; 1 INJECTION
     Route: 026
     Dates: start: 201805

REACTIONS (3)
  - Blood blister [Recovered/Resolved]
  - Inappropriate schedule of product administration [Unknown]
  - Penile blister [Recovered/Resolved]

NARRATIVE: CASE EVENT DATE: 201805
